FAERS Safety Report 5081733-3 (Version None)
Quarter: 2006Q3

REPORT INFORMATION
  Report Type: 
  Country: None (occurrence: None)
  Receive Date: 20060816
  Receipt Date: 20060809
  Transmission Date: 20061208
  Serious: Yes (Hospitalization)
  Sender: FDA-Public Use
  Company Number: US-MERCK-0608USA02058

PATIENT
  Age: 59 Year
  Sex: Female

DRUGS (2)
  1. VYTORIN [Suspect]
     Indication: BLOOD CHOLESTEROL INCREASED
     Route: 048
     Dates: start: 20060101, end: 20060701
  2. VYTORIN [Suspect]
     Route: 048
     Dates: start: 20050901, end: 20060101

REACTIONS (14)
  - ADVERSE EVENT [None]
  - AGEUSIA [None]
  - ANOREXIA [None]
  - BREATH ODOUR [None]
  - CHROMATURIA [None]
  - EYE DISCHARGE [None]
  - FAECES DISCOLOURED [None]
  - FATIGUE [None]
  - HEPATIC ENZYME INCREASED [None]
  - JAUNDICE [None]
  - NAUSEA [None]
  - RASH [None]
  - URINE ODOUR ABNORMAL [None]
  - WRONG TECHNIQUE IN DRUG USAGE PROCESS [None]
